FAERS Safety Report 13064139 (Version 1)
Quarter: 2016Q4

REPORT INFORMATION
  Report Type: Spontaneous
  Country: US (occurrence: US)
  Receive Date: 20161226
  Receipt Date: 20161226
  Transmission Date: 20170207
  Serious: No
  Sender: FDA-Public Use
  Company Number: None

PATIENT
  Age: 27 Year
  Sex: Female
  Weight: 122.47 kg

DRUGS (1)
  1. MIRENA [Suspect]
     Active Substance: LEVONORGESTREL
     Dates: start: 20160315

REACTIONS (12)
  - Weight increased [None]
  - Loss of libido [None]
  - Insomnia [None]
  - Dyspnoea [None]
  - Acne [None]
  - Mood swings [None]
  - Dyspareunia [None]
  - Fatigue [None]
  - Depression [None]
  - Back pain [None]
  - Headache [None]
  - Anxiety [None]

NARRATIVE: CASE EVENT DATE: 20160414
